FAERS Safety Report 9008378 (Version 2)
Quarter: 2013Q2

REPORT INFORMATION
  Report Type: Report from Study
  Country: GB (occurrence: GB)
  Receive Date: 20130111
  Receipt Date: 20130408
  Transmission Date: 20140414
  Serious: Yes (Other)
  Sender: FDA-Public Use
  Company Number: PHFR2013GB000542

PATIENT
  Sex: Female
  Weight: 94.8 kg

DRUGS (1)
  1. ACZ885 [Suspect]
     Indication: CRYOPYRIN ASSOCIATED PERIODIC SYNDROME
     Dosage: 150 MG, EVERY 8 WEEKS
     Route: 058
     Dates: start: 20101027

REACTIONS (3)
  - Post procedural haemorrhage [Unknown]
  - Pharyngitis [Recovered/Resolved]
  - Tonsillitis [Unknown]
